FAERS Safety Report 12609170 (Version 2)
Quarter: 2016Q4

REPORT INFORMATION
  Report Type: Spontaneous
  Country: DE (occurrence: DE)
  Receive Date: 20160731
  Receipt Date: 20161003
  Transmission Date: 20170207
  Serious: Yes (Hospitalization, Other)
  Sender: FDA-Public Use
  Company Number: PHHY2016DE083632

PATIENT
  Age: 67 Year
  Sex: Male
  Weight: 77.5 kg

DRUGS (21)
  1. PANTOPRAZOLE [Concomitant]
     Active Substance: PANTOPRAZOLE SODIUM
     Indication: GASTROOESOPHAGEAL REFLUX DISEASE
     Dosage: 1 DF (40 MG), QD
     Route: 048
  2. ENTRESTO [Suspect]
     Active Substance: SACUBITRIL\VALSARTAN
     Indication: CARDIAC FAILURE
     Dosage: 100 MG (49/51 MG ), BID
     Route: 048
     Dates: start: 20160412, end: 20160606
  3. METAMIZOLE [Suspect]
     Active Substance: METAMIZOLE
     Indication: PAIN
     Route: 065
  4. ASPIRIN. [Concomitant]
     Active Substance: ASPIRIN
     Indication: MYOCARDIAL INFARCTION
  5. NITROLINGUAL-SPRAY N [Concomitant]
     Indication: PRODUCT USED FOR UNKNOWN INDICATION
     Dosage: UNK UNK, PRN
     Route: 065
  6. CARVEDILOL. [Concomitant]
     Active Substance: CARVEDILOL
     Indication: CORONARY ARTERY DISEASE
  7. PANTOPRAZOLE [Concomitant]
     Active Substance: PANTOPRAZOLE SODIUM
     Dosage: 1 DF (40 MG), BID
     Route: 048
     Dates: start: 201606
  8. PANTOPRAZOLE [Concomitant]
     Active Substance: PANTOPRAZOLE SODIUM
     Dosage: 1 DF (40 MG), QD
     Route: 065
     Dates: start: 20160824
  9. LANTUS [Concomitant]
     Active Substance: INSULIN GLARGINE
     Indication: PRODUCT USED FOR UNKNOWN INDICATION
     Dosage: 10 IU, QD
     Route: 065
  10. ASPIRIN. [Concomitant]
     Active Substance: ASPIRIN
     Indication: CARDIAC FAILURE
  11. VITAMIN B12 [Concomitant]
     Active Substance: CYANOCOBALAMIN
     Indication: PRODUCT USED FOR UNKNOWN INDICATION
     Dosage: 2000 (IM), QMO
     Route: 030
  12. TORASEMID [Concomitant]
     Active Substance: TORSEMIDE
     Indication: CORONARY ARTERY DISEASE
  13. CARVEDILOL. [Concomitant]
     Active Substance: CARVEDILOL
     Indication: CARDIAC FAILURE
     Dosage: 2 DF (25 MG), QD
     Route: 048
     Dates: start: 2009
  14. NORSPAN [Suspect]
     Active Substance: BUPRENORPHINE
     Indication: PAIN
     Dosage: 10 UG (PER HOUR)
     Route: 065
     Dates: start: 201604
  15. HUMALOG [Concomitant]
     Active Substance: INSULIN LISPRO
     Indication: PRODUCT USED FOR UNKNOWN INDICATION
     Dosage: (10 IU-IU-6IU), QD
     Route: 065
  16. ENTRESTO [Suspect]
     Active Substance: SACUBITRIL\VALSARTAN
     Dosage: 50 MG (24/26 MG)
     Route: 048
     Dates: start: 20160606
  17. ASPIRIN. [Concomitant]
     Active Substance: ASPIRIN
     Indication: CORONARY ARTERY DISEASE
     Dosage: 100 MG, QD
     Route: 048
     Dates: start: 2009
  18. TORASEMID [Concomitant]
     Active Substance: TORSEMIDE
     Indication: CARDIAC FAILURE
     Dosage: 2 DF (10 MG), QD AS NEEDED
     Route: 048
     Dates: start: 2009
  19. TORASEMID [Concomitant]
     Active Substance: TORSEMIDE
     Indication: MYOCARDIAL INFARCTION
  20. CARVEDILOL. [Concomitant]
     Active Substance: CARVEDILOL
     Indication: MYOCARDIAL INFARCTION
  21. ALDACTONE [Concomitant]
     Active Substance: SPIRONOLACTONE
     Indication: PRODUCT USED FOR UNKNOWN INDICATION
     Dosage: 1 DF (25 MG) QD
     Route: 041

REACTIONS (40)
  - Blood sodium decreased [Unknown]
  - Serum ferritin increased [Unknown]
  - Hyperhidrosis [Unknown]
  - Fluid intake reduced [Unknown]
  - Hypotension [Recovered/Resolved]
  - Lumbar spinal stenosis [Unknown]
  - Diabetic neuropathy [Unknown]
  - Diverticulum intestinal [Unknown]
  - Rectal polyp [Unknown]
  - Renal cyst [Unknown]
  - Oesophageal dilatation [Unknown]
  - Major depression [Unknown]
  - Nephrogenic anaemia [Unknown]
  - Asthenia [Unknown]
  - Left atrial dilatation [Unknown]
  - Hypokinesia [Unknown]
  - Night sweats [Unknown]
  - Mental disorder [Unknown]
  - Constipation [Unknown]
  - Kyphoscoliosis [Unknown]
  - Anaemia macrocytic [Unknown]
  - Decreased appetite [Unknown]
  - Haemorrhoids [Unknown]
  - Pain [Unknown]
  - Glomerular filtration rate decreased [Recovered/Resolved]
  - Somatic symptom disorder [Unknown]
  - Thrombocytopenia [Recovered/Resolved]
  - Blood creatinine increased [Recovered/Resolved]
  - Chronic kidney disease [Unknown]
  - Intervertebral disc protrusion [Unknown]
  - Normochromic normocytic anaemia [Unknown]
  - Malaise [Unknown]
  - Blood urea increased [Recovered/Resolved]
  - Hiatus hernia [Unknown]
  - Chronic kidney disease-mineral and bone disorder [Unknown]
  - Weight decreased [Unknown]
  - Large intestine polyp [Unknown]
  - Diastolic dysfunction [Unknown]
  - General physical health deterioration [Unknown]
  - Blood chloride decreased [Unknown]

NARRATIVE: CASE EVENT DATE: 201604
